FAERS Safety Report 24550861 (Version 2)
Quarter: 2024Q4

REPORT INFORMATION
  Report Type: Spontaneous
  Country: CA (occurrence: CA)
  Receive Date: 20241025
  Receipt Date: 20241105
  Transmission Date: 20250115
  Serious: No
  Sender: ORGANON
  Company Number: CA-ORGANON-O2410CAN002070

PATIENT
  Sex: Female

DRUGS (1)
  1. NEXPLANON [Suspect]
     Active Substance: ETONOGESTREL
     Dosage: 1 IMPLANT
     Route: 059
     Dates: start: 2023, end: 2024

REACTIONS (7)
  - Implant site injury [Unknown]
  - Implant site bruising [Unknown]
  - Amenorrhoea [Recovered/Resolved]
  - Heavy menstrual bleeding [Recovered/Resolved]
  - Nausea [Recovered/Resolved]
  - Mood swings [Recovered/Resolved]
  - Menstruation delayed [Not Recovered/Not Resolved]

NARRATIVE: CASE EVENT DATE: 20230101
